FAERS Safety Report 15701968 (Version 2)
Quarter: 2019Q1

REPORT INFORMATION
  Report Type: Spontaneous
  Country: JP (occurrence: JP)
  Receive Date: 20181209
  Receipt Date: 20190118
  Transmission Date: 20190417
  Serious: Yes (Other)
  Sender: FDA-Public Use
  Company Number: JP-TEVA-2018-JP-984935

PATIENT
  Age: 47 Year
  Sex: Female

DRUGS (1)
  1. AZILECT [Suspect]
     Active Substance: RASAGILINE MESYLATE
     Indication: PARKINSON^S DISEASE
     Route: 048
     Dates: start: 20181106, end: 20181112

REACTIONS (2)
  - Hypoaesthesia [Recovered/Resolved]
  - Mental impairment [Recovered/Resolved]
